FAERS Safety Report 5494772-5 (Version None)
Quarter: 2007Q4

REPORT INFORMATION
  Report Type: 
  Country: None (occurrence: None)
  Receive Date: 20071015
  Receipt Date: 20070821
  Transmission Date: 20080405
  Serious: No
  Sender: FDA-Public Use
  Company Number: 2007SP002934

PATIENT
  Age: 62 Year
  Sex: Female
  Weight: 73.9363 kg

DRUGS (5)
  1. LUNESTA [Suspect]
     Indication: INSOMNIA
     Dosage: 2 MG HS ORAL
     Route: 048
     Dates: start: 20060101
  2. VALIUM [Concomitant]
  3. CALCIUM [Concomitant]
  4. ZETIA [Concomitant]
  5. INSULIN [Concomitant]

REACTIONS (1)
  - INITIAL INSOMNIA [None]
